FAERS Safety Report 9572475 (Version 1)
Quarter: 2013Q1

REPORT INFORMATION
  Report Type: Spontaneous
  Country: US (occurrence: None)
  Receive Date: 20120702
  Receipt Date: 20120702
  Transmission Date: 20140127
  Serious: Yes (Other)
  Sender: FDA-Public Use
  Company Number: 054843

PATIENT
  Age: 63 Year
  Sex: Female

DRUGS (4)
  1. LORTAB /00607101/ [Suspect]
     Indication: BACK PAIN
     Dosage: 2 CAPLETS
     Route: 048
  2. EXCEDRIN MIGRAINE [Suspect]
     Dosage: 2 CAPLETS
     Route: 048
     Dates: start: 1970
  3. EXCEDRIN EXTRA STRENGTH [Suspect]
     Dosage: 2-3 TABLETS
     Route: 048
  4. BACITRACIN [Concomitant]

REACTIONS (1)
  - Surgery [None]
